FAERS Safety Report 6678583-0 (Version None)
Quarter: 2010Q2

REPORT INFORMATION
  Report Type: 
  Country: None (occurrence: None)
  Receive Date: 20100412
  Receipt Date: 20100412
  Transmission Date: 20101027
  Serious: Yes (Hospitalization)
  Sender: FDA-Public Use
  Company Number: None

PATIENT
  Age: 38 Year
  Sex: Male
  Weight: 101 kg

DRUGS (6)
  1. PROPRANOLOL [Suspect]
     Indication: SUICIDAL BEHAVIOUR
     Dosage: 1.5 GM PO X 1
     Route: 048
     Dates: start: 20091129
  2. BUPROPION [Concomitant]
  3. VENLAFAXINE HCL [Concomitant]
  4. QUETIAPINE [Concomitant]
  5. OLANZAPINE [Concomitant]
  6. CLONAZEPAM [Concomitant]

REACTIONS (3)
  - HEART RATE DECREASED [None]
  - INCORRECT DOSE ADMINISTERED [None]
  - MEDICATION ERROR [None]
